FAERS Safety Report 12522753 (Version 1)
Quarter: 2016Q3

REPORT INFORMATION
  Report Type: Spontaneous
  Country: FR (occurrence: FR)
  Receive Date: 20160701
  Receipt Date: 20160701
  Transmission Date: 20161109
  Serious: Yes (Other)
  Sender: FDA-Public Use
  Company Number: FR-ELI_LILLY_AND_COMPANY-FR201606006912

PATIENT
  Sex: Male
  Weight: 83 kg

DRUGS (1)
  1. ZYPADHERA [Suspect]
     Active Substance: OLANZAPINE PAMOATE
     Indication: SCHIZOPHRENIA
     Dosage: 300 MG, EVERY TWO WEEKS
     Route: 030
     Dates: start: 20140107, end: 20160430

REACTIONS (2)
  - Dehydration [Unknown]
  - Confusional state [Unknown]

NARRATIVE: CASE EVENT DATE: 2015
